FAERS Safety Report 7249324-3 (Version None)
Quarter: 2011Q1

REPORT INFORMATION
  Report Type: 
  Country: None (occurrence: None)
  Receive Date: 20110128
  Receipt Date: 20110119
  Transmission Date: 20110831
  Serious: Yes (Hospitalization, Other)
  Sender: FDA-Public Use
  Company Number: US-NOVOPROD-321335

PATIENT
  Sex: Female
  Weight: 70.476 kg

DRUGS (1)
  1. LIRAGLUTIDE FLEXPEN [Suspect]
     Indication: TYPE 2 DIABETES MELLITUS
     Dosage: 1.8 MG, QD
     Route: 058
     Dates: start: 20101111, end: 20110101

REACTIONS (2)
  - HYPERGLYCAEMIA [None]
  - ESCHERICHIA URINARY TRACT INFECTION [None]
